FAERS Safety Report 22102240 (Version 3)
Quarter: 2023Q2

REPORT INFORMATION
  Report Type: Report from Study
  Country: CN (occurrence: CN)
  Receive Date: 20230316
  Receipt Date: 20230529
  Transmission Date: 20230722
  Serious: Yes (Hospitalization, Other)
  Sender: FDA-Public Use
  Company Number: CN-GLAXOSMITHKLINE-CN2023APC038448

PATIENT

DRUGS (7)
  1. FLUTICASONE FUROATE\UMECLIDINIUM BROMIDE\VILANTEROL TRIFENATATE [Suspect]
     Active Substance: FLUTICASONE FUROATE\UMECLIDINIUM BROMIDE\VILANTEROL TRIFENATATE
     Indication: Chronic obstructive pulmonary disease
     Dosage: 1 DF, QD (SPRAY)
     Route: 055
     Dates: start: 20230308, end: 20230309
  2. BUFEI HUOXUE CAPSULES [Concomitant]
     Indication: Cough
     Dosage: 1.05 G, TID
     Route: 048
     Dates: start: 20230308
  3. DOXOFYLLINE [Concomitant]
     Active Substance: DOXOFYLLINE
     Indication: Asthma
     Dosage: 0.2 G, QD
     Route: 042
     Dates: start: 20230309, end: 20230314
  4. DOXOFYLLINE [Concomitant]
     Active Substance: DOXOFYLLINE
     Dosage: 0.4 G, BID
     Route: 048
     Dates: start: 20230308, end: 20230310
  5. BUDESONIDE + FORMOTEROL POWDER INHALATION MIST [Concomitant]
     Indication: Chronic obstructive pulmonary disease
     Dosage: 160 UG, BID
     Route: 055
     Dates: start: 2019, end: 20230307
  6. ACETYLCYSTEINE TABLET [Concomitant]
     Indication: Asthma
     Dosage: 0.6 G, QD
     Route: 048
     Dates: start: 20230308
  7. QIANGLI PIPA LU [Concomitant]
     Indication: Cough
     Dosage: 0.9 G, TID
     Route: 048
     Dates: start: 20230308

REACTIONS (1)
  - Arrhythmia [Recovered/Resolved]

NARRATIVE: CASE EVENT DATE: 20230308
